FAERS Safety Report 9406421 (Version 1)
Quarter: 2013Q3

REPORT INFORMATION
  Report Type: Spontaneous
  Country: TW (occurrence: TW)
  Receive Date: 20130718
  Receipt Date: 20130718
  Transmission Date: 20140515
  Serious: Yes (Other)
  Sender: FDA-Public Use
  Company Number: TW-ROCHE-1249804

PATIENT
  Age: 56 Year
  Sex: Female

DRUGS (4)
  1. PEGASYS [Suspect]
     Indication: HEPATITIS C
     Route: 058
     Dates: start: 201304, end: 2013
  2. PEGASYS [Suspect]
     Route: 058
     Dates: start: 2013
  3. RIBARIN [Suspect]
     Indication: HEPATITIS C
     Route: 048
     Dates: start: 201304, end: 2013
  4. RIBARIN [Suspect]
     Route: 048
     Dates: start: 2013

REACTIONS (5)
  - Palpitations [Not Recovered/Not Resolved]
  - Ventricular hypertrophy [Unknown]
  - Pyrexia [Not Recovered/Not Resolved]
  - Hypoaesthesia [Not Recovered/Not Resolved]
  - Vomiting [Not Recovered/Not Resolved]
